FAERS Safety Report 9851632 (Version 1)
Quarter: 2014Q1

REPORT INFORMATION
  Report Type: Spontaneous
  Country: NO (occurrence: NO)
  Receive Date: 20140129
  Receipt Date: 20140129
  Transmission Date: 20141002
  Serious: Yes (Hospitalization, Other)
  Sender: FDA-Public Use
  Company Number: NO-MERCK-1401NOR011697

PATIENT
  Age: 63 Year
  Sex: Male

DRUGS (9)
  1. EZETROL [Suspect]
     Dosage: UNK
     Route: 048
     Dates: start: 201307, end: 201310
  2. SIMVASTATINE BLUEFISH [Interacting]
     Dosage: UNK
     Dates: start: 201206, end: 201310
  3. IMACILLIN [Interacting]
     Indication: INFECTION
     Dosage: UNK
     Dates: start: 20130621
  4. ERYMAX [Interacting]
     Indication: INFECTION
     Dosage: UNK
     Dates: start: 20130826, end: 20130828
  5. MAREVAN [Concomitant]
     Indication: INTRACARDIAC THROMBUS
  6. ALBYL-E [Concomitant]
     Dosage: TOTAL DAILY DOSE(SPECIFY UNITS) 75MGX1
  7. FLUTIDE [Concomitant]
     Dosage: TOTAL DAILY DOSE(SPECIFY UNITS) 50 MICROGRAM/DOSE
  8. FURIX [Concomitant]
     Dosage: TOTAL DAILY DOSE(SPECIFY UNITS)  20MGX1
  9. RAMIPRIL [Concomitant]
     Dosage: TOTAL DAILY DOSE(SPECIFY UNITS)  5MGX1

REACTIONS (10)
  - Rhabdomyolysis [Recovering/Resolving]
  - Atrial fibrillation [Recovered/Resolved]
  - C-reactive protein increased [Recovered/Resolved]
  - Blood creatine phosphokinase increased [Recovered/Resolved]
  - Drug interaction [Unknown]
  - Dyspnoea [Recovered/Resolved]
  - Productive cough [Recovered/Resolved]
  - Cardioversion [Unknown]
  - Drug level increased [Unknown]
  - Overdose [Unknown]
